FAERS Safety Report 9285255 (Version 1)
Quarter: 2013Q2

REPORT INFORMATION
  Report Type: Report from Study
  Country: US (occurrence: US)
  Receive Date: 20130513
  Receipt Date: 20130513
  Transmission Date: 20140414
  Serious: Yes (Other)
  Sender: FDA-Public Use
  Company Number: US-JNJFOC-20130502318

PATIENT
  Sex: Female
  Weight: 101.15 kg

DRUGS (5)
  1. REMICADE [Suspect]
     Indication: RHEUMATOID ARTHRITIS
     Route: 042
     Dates: start: 201111, end: 20130221
  2. METHOTREXATE [Concomitant]
     Route: 065
  3. MELOXICAM [Concomitant]
     Route: 065
  4. ZOCOR [Concomitant]
     Route: 065
  5. LEVOTHYROXINE [Concomitant]
     Route: 065

REACTIONS (1)
  - Arthropathy [Unknown]
